FAERS Safety Report 26063487 (Version 2)
Quarter: 2025Q4

REPORT INFORMATION
  Report Type: Spontaneous
  Country: US (occurrence: US)
  Receive Date: 20251119
  Receipt Date: 20251125
  Transmission Date: 20260118
  Serious: Yes (Other)
  Sender: ABBVIE
  Company Number: US-ABBVIE-6548038

PATIENT
  Age: 79 Year

DRUGS (3)
  1. CARBOXYMETHYLCELLULOSE SODIUM\GLYCERIN [Suspect]
     Active Substance: CARBOXYMETHYLCELLULOSE SODIUM\GLYCERIN
     Indication: Dry eye
     Dosage: FIRST ADMIN DATE: YEARS AGO, ROA: OPHTHALMIC
     Route: 065
  2. REFRESH RELIEVA [Suspect]
     Active Substance: CARBOXYMETHYLCELLULOSE SODIUM\GLYCERIN
     Indication: Product used for unknown indication
     Dosage: ROA: OPHTHALMIC
     Route: 065
  3. REFRESH CLASSIC [Suspect]
     Active Substance: POLYVINYL ALCOHOL\POVIDONE
     Indication: Product used for unknown indication
     Dosage: ROA: OPHTHALMIC
     Route: 065

REACTIONS (4)
  - Cataract [Unknown]
  - Eye movement disorder [Unknown]
  - Asthenopia [Unknown]
  - Therapeutic product effect incomplete [Unknown]
